FAERS Safety Report 6096346-4 (Version None)
Quarter: 2009Q1

REPORT INFORMATION
  Report Type: 
  Country: None (occurrence: None)
  Receive Date: 20090227
  Receipt Date: 20081201
  Transmission Date: 20090719
  Serious: No
  Sender: FDA-Public Use
  Company Number: A0757057A

PATIENT
  Age: 30 Year
  Sex: Female

DRUGS (2)
  1. LAMICTAL [Suspect]
     Indication: EPILEPSY
     Dosage: 150MG SEE DOSAGE TEXT
     Route: 048
  2. NO CONCURRENT MEDICATION [Concomitant]

REACTIONS (2)
  - DIZZINESS [None]
  - MEDICATION ERROR [None]
